FAERS Safety Report 13095060 (Version 1)
Quarter: 2017Q1

REPORT INFORMATION
  Report Type: Spontaneous
  Country: IN (occurrence: IN)
  Receive Date: 20170106
  Receipt Date: 20170106
  Transmission Date: 20170428
  Serious: Yes (Hospitalization, Other)
  Sender: FDA-Public Use
  Company Number: IN-APOPHARMA USA, INC.-2016AP016279

PATIENT
  Age: 61 Year
  Sex: Male

DRUGS (1)
  1. ALKERAN [Suspect]
     Active Substance: MELPHALAN
     Indication: SURGICAL PRECONDITIONING
     Dosage: 200 MG, OTHER
     Route: 065

REACTIONS (1)
  - Ventricular arrhythmia [Recovered/Resolved]
